FAERS Safety Report 10457208 (Version 1)
Quarter: 2014Q3

REPORT INFORMATION
  Report Type: Spontaneous
  Country: NO (occurrence: NO)
  Receive Date: 20140916
  Receipt Date: 20140916
  Transmission Date: 20150326
  Serious: Yes (Death, Other)
  Sender: FDA-Public Use
  Company Number: NO-ELI_LILLY_AND_COMPANY-NO201409003378

PATIENT
  Age: 59 Year
  Sex: Female

DRUGS (9)
  1. AFIPRAN [Concomitant]
     Dosage: 10 MG, UNKNOWN
  2. FOLIC ACID. [Concomitant]
     Active Substance: FOLIC ACID
     Dosage: 1 MG, QD
  3. B12                                /00056202/ [Concomitant]
     Route: 030
  4. MEDROL [Concomitant]
     Active Substance: METHYLPREDNISOLONE
     Dosage: 16 MG, QD
     Dates: end: 20140905
  5. KLEXANE [Concomitant]
     Active Substance: ENOXAPARIN
     Dosage: 60 MG, BID
     Route: 058
  6. SOMAC [Concomitant]
     Active Substance: PANTOPRAZOLE SODIUM
     Dosage: 40 MG, QD
  7. MEDROL [Concomitant]
     Active Substance: METHYLPREDNISOLONE
     Dosage: 8 MG, QD
     Dates: start: 20140906
  8. ALIMTA [Suspect]
     Active Substance: PEMETREXED DISODIUM
     Indication: ADENOCARCINOMA
     Dosage: 860 MG, CYCLICAL
     Route: 042
     Dates: start: 20140716
  9. PARACET                            /00020001/ [Concomitant]
     Active Substance: ACETAMINOPHEN
     Dosage: 1 G, QID

REACTIONS (14)
  - Superior vena cava syndrome [Unknown]
  - Asthenia [Unknown]
  - Oedema [Unknown]
  - C-reactive protein increased [Unknown]
  - Pain [Recovering/Resolving]
  - Death [Fatal]
  - Embolism venous [Unknown]
  - Bone marrow disorder [Unknown]
  - Breath odour [Unknown]
  - Thrombocytopenia [Unknown]
  - Pneumonia [Unknown]
  - General physical health deterioration [Unknown]
  - Thrombophlebitis [Unknown]
  - Malignant neoplasm progression [Unknown]

NARRATIVE: CASE EVENT DATE: 20140908
